FAERS Safety Report 5897102-X (Version None)
Quarter: 2008Q3

REPORT INFORMATION
  Report Type: 
  Country: None (occurrence: None)
  Receive Date: 20080924
  Receipt Date: 20080612
  Transmission Date: 20090109
  Serious: Yes (Hospitalization)
  Sender: FDA-Public Use
  Company Number: US-ASTRAZENECA-2008UW11952

PATIENT
  Age: 24 Year
  Sex: Female

DRUGS (3)
  1. SEROQUEL [Suspect]
     Indication: BIPOLAR DISORDER
     Route: 048
     Dates: start: 20080508
  2. SEROQUEL [Suspect]
     Route: 048
     Dates: start: 20080508
  3. CLONOPIN [Concomitant]

REACTIONS (1)
  - CONVULSION [None]
